FAERS Safety Report 7502629-0 (Version None)
Quarter: 2011Q2

REPORT INFORMATION
  Report Type: 
  Country: None (occurrence: None)
  Receive Date: 20110525
  Receipt Date: 20110512
  Transmission Date: 20111010
  Serious: Yes (Other)
  Sender: FDA-Public Use
  Company Number: PHHY2010CA40755

PATIENT
  Sex: Female

DRUGS (2)
  1. SANDOSTATIN LAR [Suspect]
     Indication: LUNG NEOPLASM MALIGNANT
     Dosage: 20 MG EVERY 4 WEEKS
     Route: 030
     Dates: start: 20100617
  2. SANDOSTATIN [Suspect]
     Indication: LUNG NEOPLASM MALIGNANT
     Route: 058
     Dates: start: 20100116

REACTIONS (13)
  - MALAISE [None]
  - FATIGUE [None]
  - DIZZINESS [None]
  - HUNGER [None]
  - INJECTION SITE MASS [None]
  - DRY MOUTH [None]
  - INJECTION SITE ERYTHEMA [None]
  - RASH MACULAR [None]
  - CHOLELITHIASIS [None]
  - HYPOTHYROIDISM [None]
  - ABDOMINAL PAIN [None]
  - APHAGIA [None]
  - NAUSEA [None]
